FAERS Safety Report 6271312-4 (Version None)
Quarter: 2009Q3

REPORT INFORMATION
  Report Type: 
  Country: None (occurrence: None)
  Receive Date: 20090716
  Receipt Date: 20090716
  Transmission Date: 20100115
  Serious: Yes (Disabling, Other)
  Sender: FDA-Public Use
  Company Number: None

PATIENT
  Age: 59 Year
  Sex: Female
  Weight: 52.1637 kg

DRUGS (6)
  1. BONIVA [Suspect]
     Indication: BONE DENSITY DECREASED
     Dosage: IT WAS 1ST TIME IT LASTS FOR 3 MONTHS
     Dates: start: 20090422
  2. KLONOPIN [Concomitant]
  3. TOPAMAX [Concomitant]
  4. PROVACAL [Concomitant]
  5. FLEXAL [Concomitant]
  6. ZOLOFT [Concomitant]

REACTIONS (8)
  - BONE PAIN [None]
  - BURNING SENSATION [None]
  - DIARRHOEA [None]
  - FEELING ABNORMAL [None]
  - FOOT FRACTURE [None]
  - HEADACHE [None]
  - NAUSEA [None]
  - NECK PAIN [None]
